FAERS Safety Report 17227017 (Version 2)
Quarter: 2020Q1

REPORT INFORMATION
  Report Type: Report from Study
  Country: None (occurrence: US)
  Receive Date: 20200103
  Receipt Date: 20200128
  Transmission Date: 20200409
  Serious: Yes (Other)
  Sender: FDA-Public Use
  Company Number: US-ABBVIE-20P-163-3217848-00

PATIENT
  Sex: Female

DRUGS (1)
  1. HUMIRA [Suspect]
     Active Substance: ADALIMUMAB
     Indication: RHEUMATOID ARTHRITIS
     Route: 058
     Dates: end: 2014

REACTIONS (13)
  - Joint injury [Recovered/Resolved]
  - Oral disorder [Recovered/Resolved]
  - Musculoskeletal disorder [Unknown]
  - Sensory loss [Unknown]
  - Joint range of motion decreased [Unknown]
  - Blood potassium decreased [Recovered/Resolved]
  - Throat lesion [Recovered/Resolved]
  - Thyroid cancer [Recovered/Resolved]
  - Rheumatoid arthritis [Recovered/Resolved]
  - Arthropathy [Unknown]
  - Carpal tunnel syndrome [Recovered/Resolved]
  - Neck mass [Recovered/Resolved]
  - Heart rate increased [Not Recovered/Not Resolved]
